FAERS Safety Report 4681823-0 (Version None)
Quarter: 2005Q2

REPORT INFORMATION
  Report Type: 
  Country: None (occurrence: None)
  Receive Date: 20050602
  Receipt Date: 20050524
  Transmission Date: 20051028
  Serious: Yes (Life-Threatening, Hospitalization)
  Sender: FDA-Public Use
  Company Number: 2005-04-1399

PATIENT
  Age: 77 Year
  Sex: Male
  Weight: 61 kg

DRUGS (2)
  1. PEG-INTRON [Suspect]
     Indication: HEPATITIS C
     Dosage: 80 MCG QW, SUBCUTANEOUS
     Route: 058
     Dates: start: 20041215, end: 20050318
  2. REBETOL [Suspect]
     Indication: HEPATITIS C
     Dosage: 600 MG ORAL
     Route: 048
     Dates: start: 20041215, end: 20050324

REACTIONS (5)
  - ARTHRALGIA [None]
  - PRURITUS [None]
  - PSOAS ABSCESS [None]
  - SPONDYLITIS [None]
  - STAPHYLOCOCCAL BACTERAEMIA [None]
